FAERS Safety Report 9664893 (Version 1)
Quarter: 2013Q4

REPORT INFORMATION
  Report Type: Spontaneous
  Country: FR (occurrence: FR)
  Receive Date: 20131101
  Receipt Date: 20131101
  Transmission Date: 20140711
  Serious: Yes (Hospitalization)
  Sender: FDA-Public Use
  Company Number: FR-GLAXOSMITHKLINE-B0936441A

PATIENT
  Age: 94 Year
  Sex: Female

DRUGS (4)
  1. ARIXTRA [Suspect]
     Indication: PULMONARY EMBOLISM
     Dosage: 7.5MG PER DAY
     Route: 065
     Dates: start: 20130927, end: 20131004
  2. ANTICOAGULANT [Concomitant]
     Dates: end: 2013
  3. DIURETIC [Concomitant]
     Dates: end: 2013
  4. NEBIVOLOL [Concomitant]
     Dates: end: 2013

REACTIONS (5)
  - Haematoma [Recovered/Resolved with Sequelae]
  - Anaemia [Recovered/Resolved]
  - Renal failure acute [Unknown]
  - Fall [Unknown]
  - Gait disturbance [Unknown]
